FAERS Safety Report 4743791-2 (Version None)
Quarter: 2005Q3

REPORT INFORMATION
  Report Type: 
  Country: None (occurrence: None)
  Receive Date: 20050809
  Receipt Date: 20050727
  Transmission Date: 20060218
  Serious: Yes (Life-Threatening, Other)
  Sender: FDA-Public Use
  Company Number: 2005FR-00156

PATIENT
  Age: 47 Year
  Sex: Male

DRUGS (4)
  1. RANITIDINE HCL [Suspect]
     Dosage: 150 MG, BD, ORAL
     Route: 048
     Dates: start: 20050614, end: 20050622
  2. TAZOCIN [Concomitant]
  3. VANCOMYCIN [Concomitant]
  4. WARFARIN [Concomitant]

REACTIONS (2)
  - AGRANULOCYTOSIS [None]
  - NEUTROPENIA [None]
